FAERS Safety Report 11220230 (Version 1)
Quarter: 2015Q2

REPORT INFORMATION
  Report Type: Spontaneous
  Country: DE (occurrence: DE)
  Receive Date: 20150625
  Receipt Date: 20150625
  Transmission Date: 20150821
  Serious: Yes (Hospitalization)
  Sender: FDA-Public Use
  Company Number: DE-EXELIXIS-CABO-15005360

PATIENT
  Age: 44 Year
  Sex: Male
  Weight: 76 kg

DRUGS (9)
  1. KEPPRA [Concomitant]
     Active Substance: LEVETIRACETAM
  2. L-THYROXIN [Concomitant]
     Active Substance: LEVOTHYROXINE SODIUM
  3. ALENDRONIC ACID [Concomitant]
     Active Substance: ALENDRONIC ACID
  4. ASPIRIN. [Concomitant]
     Active Substance: ASPIRIN
  5. TORASEMID [Concomitant]
     Active Substance: TORSEMIDE
  6. PANTOZOL [Concomitant]
     Active Substance: PANTOPRAZOLE SODIUM
  7. COMETRIQ [Suspect]
     Active Substance: CABOZANTINIB S-MALATE
     Indication: MEDULLARY THYROID CANCER
     Dosage: 60 MG, QD
     Route: 048
     Dates: start: 201411, end: 20150409
  8. NEBILET [Concomitant]
     Active Substance: NEBIVOLOL
  9. DEXAMETHASONE. [Concomitant]
     Active Substance: DEXAMETHASONE

REACTIONS (2)
  - Deep vein thrombosis [Unknown]
  - Pulmonary embolism [Unknown]

NARRATIVE: CASE EVENT DATE: 20150409
